FAERS Safety Report 6342940-2 (Version None)
Quarter: 2009Q3

REPORT INFORMATION
  Report Type: 
  Country: None (occurrence: None)
  Receive Date: 20090908
  Receipt Date: 20090825
  Transmission Date: 20100115
  Serious: Yes (Disabling, Other)
  Sender: FDA-Public Use
  Company Number: US-ROCHE-622162

PATIENT
  Sex: Female
  Weight: 83.9 kg

DRUGS (7)
  1. ACCUTANE [Suspect]
     Route: 065
     Dates: start: 20040702, end: 20041004
  2. ACCUTANE [Suspect]
     Route: 065
     Dates: start: 20041005, end: 20041209
  3. ACCUTANE [Suspect]
     Route: 065
     Dates: start: 20041210, end: 20050101
  4. AMNESTEEM [Suspect]
     Indication: ACNE
     Route: 065
     Dates: start: 20040324, end: 20040630
  5. ZESTRIL [Concomitant]
     Indication: HYPERTENSION
     Route: 065
  6. NORVASC [Concomitant]
     Indication: HYPERTENSION
     Route: 065
  7. HYDROCHLOROTHIAZIDE [Concomitant]
     Indication: HYPERTENSION
     Route: 065

REACTIONS (12)
  - ANXIETY [None]
  - CHEST PAIN [None]
  - COUGH [None]
  - CROHN'S DISEASE [None]
  - EMOTIONAL DISTRESS [None]
  - GASTRITIS [None]
  - HYPOAESTHESIA [None]
  - HYPOAESTHESIA FACIAL [None]
  - INFLAMMATORY BOWEL DISEASE [None]
  - INJURY [None]
  - INTESTINAL OBSTRUCTION [None]
  - SINUSITIS [None]
